FAERS Safety Report 7726032-3 (Version None)
Quarter: 2011Q3

REPORT INFORMATION
  Report Type: 
  Country: None (occurrence: None)
  Receive Date: 20110902
  Receipt Date: 20110830
  Transmission Date: 20111222
  Serious: Yes (Death)
  Sender: FDA-Public Use
  Company Number: BR-ROCHE-787074

PATIENT
  Sex: Male
  Weight: 75.2 kg

DRUGS (10)
  1. OMEPRAZOLE [Concomitant]
     Indication: DUODENAL ULCER
     Dosage: START DATE: 23-OCT
     Route: 048
     Dates: end: 20080216
  2. ALPRAZOLAM [Concomitant]
     Indication: ANXIETY
     Route: 048
     Dates: start: 20080212, end: 20080216
  3. FEXOFENADINE [Concomitant]
     Route: 048
     Dates: start: 20080212, end: 20080216
  4. FUROSEMIDE [Concomitant]
     Indication: ASCITES
     Dosage: DRUG START DATE: 2008
     Route: 048
     Dates: end: 20080201
  5. RIBAVIRIN [Suspect]
     Indication: HEPATITIS C
     Dosage: FREQUENCY: DAILY
     Route: 048
     Dates: start: 20080122, end: 20080213
  6. LEVOTHYROXINE SODIUM [Concomitant]
     Indication: HYPOTHYROIDISM
     Dosage: START DATE: 11-APR, FREQUENCY: DAILY
     Route: 048
     Dates: end: 20080216
  7. DIFENHIDRAMINA CLORHIDRATO [Concomitant]
     Route: 048
     Dates: start: 20080207, end: 20080212
  8. SPIRONOLACTONE [Concomitant]
     Indication: ASCITES
     Dosage: DRUG START DATE: 2008
     Route: 048
     Dates: end: 20080201
  9. PEGINTERFERON ALFA-2A [Suspect]
     Indication: HEPATITIS C
     Route: 058
     Dates: start: 20080122, end: 20080213
  10. PROPRANOLOL [Concomitant]
     Indication: BLEEDING VARICOSE VEIN
     Dosage: START DATE: 17-OCT. INDICATION PROPHYLAXIS FOR VARICEAL BLEEDING, FREQUENCY:DAILY
     Route: 048
     Dates: end: 20080216

REACTIONS (2)
  - SEPSIS [None]
  - ACUTE ABDOMEN [None]
